FAERS Safety Report 4737402-X (Version None)
Quarter: 2005Q3

REPORT INFORMATION
  Report Type: 
  Country: None (occurrence: None)
  Receive Date: 20050809
  Receipt Date: 20050805
  Transmission Date: 20060218
  Serious: Yes (Hospitalization, Other)
  Sender: FDA-Public Use
  Company Number: 2005UW11575

PATIENT
  Age: 40 Year
  Sex: Male

DRUGS (3)
  1. LIDOCAINE [Suspect]
     Indication: LIGHT ANAESTHESIA
     Route: 042
  2. DIPRIVAN [Suspect]
     Indication: LIGHT ANAESTHESIA
     Dosage: 10-12 ML
     Route: 042
  3. BENZODIAZEPINES [Concomitant]

REACTIONS (3)
  - BRAIN DAMAGE [None]
  - GRAND MAL CONVULSION [None]
  - POST PROCEDURAL COMPLICATION [None]
